FAERS Safety Report 17686779 (Version 2)
Quarter: 2020Q3

REPORT INFORMATION
  Report Type: Spontaneous
  Country: CN (occurrence: CN)
  Receive Date: 20200421
  Receipt Date: 20200714
  Transmission Date: 20201102
  Serious: Yes (Death, Other)
  Sender: FDA-Public Use
  Company Number: CN-ROCHE-2583767

PATIENT
  Age: 69 Year
  Sex: Male

DRUGS (25)
  1. BENDAMUSTINE [Concomitant]
     Active Substance: BENDAMUSTINE
     Indication: MANTLE CELL LYMPHOMA
     Dosage: 125MG D1 100G D2
     Dates: start: 20200225
  2. BENDAMUSTINE [Concomitant]
     Active Substance: BENDAMUSTINE
     Dosage: 125MG D1 100G D2
     Dates: start: 20200325
  3. LENALIDOMIDE [Concomitant]
     Active Substance: LENALIDOMIDE
     Indication: MANTLE CELL LYMPHOMA
     Route: 037
     Dates: start: 20190916
  4. EPIRUBICIN [Concomitant]
     Active Substance: EPIRUBICIN
     Dates: start: 20191016
  5. CILASTATIN SODIUM [Concomitant]
     Active Substance: CILASTATIN SODIUM
  6. METHYLPREDNISOLONE SODIUM SUCCINATE. [Concomitant]
     Active Substance: METHYLPREDNISOLONE SODIUM SUCCINATE
     Dates: start: 2019
  7. CYTARABINE. [Concomitant]
     Active Substance: CYTARABINE
     Route: 037
     Dates: start: 20200325
  8. IMIPENEM [Concomitant]
     Active Substance: IMIPENEM
  9. MABTHERA [Suspect]
     Active Substance: RITUXIMAB
     Indication: MANTLE CELL LYMPHOMA
     Route: 065
     Dates: start: 20190912
  10. VINORELBINE [Concomitant]
     Active Substance: VINORELBINE TARTRATE
     Dates: start: 2019
  11. CYCLOPHOSPHAMIDE. [Concomitant]
     Active Substance: CYCLOPHOSPHAMIDE
     Dates: start: 2019
  12. METHYLPREDNISOLONE SODIUM SUCCINATE. [Concomitant]
     Active Substance: METHYLPREDNISOLONE SODIUM SUCCINATE
     Indication: MANTLE CELL LYMPHOMA
     Dates: start: 20190912
  13. LENALIDOMIDE [Concomitant]
     Active Substance: LENALIDOMIDE
     Indication: MANTLE CELL LYMPHOMA
     Dates: start: 20190912, end: 2019
  14. DEXAMETHASONE. [Concomitant]
     Active Substance: DEXAMETHASONE
     Indication: MANTLE CELL LYMPHOMA
     Route: 037
     Dates: start: 20190916
  15. VINORELBINE [Concomitant]
     Active Substance: VINORELBINE TARTRATE
     Indication: MANTLE CELL LYMPHOMA
     Dates: start: 20190912
  16. VINORELBINE [Concomitant]
     Active Substance: VINORELBINE TARTRATE
     Dates: start: 20191016
  17. CYCLOPHOSPHAMIDE. [Concomitant]
     Active Substance: CYCLOPHOSPHAMIDE
     Indication: MANTLE CELL LYMPHOMA
     Dates: start: 20190912
  18. CYCLOPHOSPHAMIDE. [Concomitant]
     Active Substance: CYCLOPHOSPHAMIDE
     Dates: start: 20191016
  19. MABTHERA [Suspect]
     Active Substance: RITUXIMAB
     Route: 065
     Dates: start: 2019
  20. CYTARABINE. [Concomitant]
     Active Substance: CYTARABINE
     Indication: MANTLE CELL LYMPHOMA
     Route: 037
     Dates: start: 20190916
  21. IBRUTINIB [Concomitant]
     Active Substance: IBRUTINIB
     Dates: start: 20200325
  22. IBRUTINIB [Concomitant]
     Active Substance: IBRUTINIB
     Indication: MANTLE CELL LYMPHOMA
     Dates: start: 20200225
  23. EPIRUBICIN [Concomitant]
     Active Substance: EPIRUBICIN
     Indication: MANTLE CELL LYMPHOMA
     Dates: start: 20190912
  24. EPIRUBICIN [Concomitant]
     Active Substance: EPIRUBICIN
     Dates: start: 2019
  25. RITUXIMAB. [Concomitant]
     Active Substance: RITUXIMAB
     Indication: MANTLE CELL LYMPHOMA
     Route: 065
     Dates: start: 20200325

REACTIONS (9)
  - Pruritus [Unknown]
  - Death [Fatal]
  - Myelosuppression [Unknown]
  - Pneumonia [Unknown]
  - Agranulocytosis [Unknown]
  - Off label use [Unknown]
  - Febrile infection [Unknown]
  - Platelet count decreased [Unknown]
  - Intentional product use issue [Unknown]

NARRATIVE: CASE EVENT DATE: 201909
